FAERS Safety Report 17053970 (Version 1)
Quarter: 2019Q4

REPORT INFORMATION
  Report Type: Spontaneous
  Country: US (occurrence: US)
  Receive Date: 20191022
  Receipt Date: 20191022
  Transmission Date: 20200122
  Serious: No
  Sender: FDA-Public Use
  Company Number: None

PATIENT
  Age: 73 Year
  Sex: Female

DRUGS (1)
  1. ORENCIA [Suspect]
     Active Substance: ABATACEPT
     Route: 058
     Dates: start: 20190201

REACTIONS (4)
  - Glossodynia [None]
  - Oropharyngeal pain [None]
  - Headache [None]
  - Stomatitis [None]

NARRATIVE: CASE EVENT DATE: 20191022
